FAERS Safety Report 8949732 (Version 2)
Quarter: 2015Q2

REPORT INFORMATION
  Report Type: Report from Study
  Country: FR (occurrence: FR)
  Receive Date: 20121206
  Receipt Date: 20150601
  Transmission Date: 20150821
  Serious: Yes (Hospitalization, Other)
  Sender: FDA-Public Use
  Company Number: FR-ROCHE-1162663

PATIENT
  Age: 57 Year
  Sex: Female

DRUGS (17)
  1. RITUXIMAB [Suspect]
     Active Substance: RITUXIMAB
     Indication: RHEUMATOID ARTHRITIS
     Route: 042
     Dates: start: 20070301
  2. RITUXIMAB [Suspect]
     Active Substance: RITUXIMAB
     Route: 042
     Dates: start: 20080509
  3. RITUXIMAB [Suspect]
     Active Substance: RITUXIMAB
     Route: 042
     Dates: start: 20090512
  4. RITUXIMAB [Suspect]
     Active Substance: RITUXIMAB
     Route: 042
     Dates: start: 20110428
  5. RITUXIMAB [Suspect]
     Active Substance: RITUXIMAB
     Route: 042
     Dates: start: 20130307
  6. RITUXIMAB [Suspect]
     Active Substance: RITUXIMAB
     Route: 042
     Dates: start: 20130221
  7. INEXIUM [Concomitant]
     Active Substance: ESOMEPRAZOLE
  8. RITUXIMAB [Suspect]
     Active Substance: RITUXIMAB
     Route: 042
     Dates: start: 20070316
  9. RITUXIMAB [Suspect]
     Active Substance: RITUXIMAB
     Route: 042
     Dates: start: 20110415
  10. CORTANCYL [Concomitant]
     Active Substance: PREDNISONE
  11. SPECIAFOLDINE [Concomitant]
     Active Substance: FOLIC ACID
  12. RITUXIMAB [Suspect]
     Active Substance: RITUXIMAB
     Route: 042
     Dates: start: 20100616
  13. RITUXIMAB [Suspect]
     Active Substance: RITUXIMAB
     Route: 042
     Dates: start: 20080424
  14. RITUXIMAB [Suspect]
     Active Substance: RITUXIMAB
     Route: 042
     Dates: start: 20100601
  15. CACIT D3 [Concomitant]
     Active Substance: CALCIUM\CHOLECALCIFEROL
  16. METHOTREXATE [Concomitant]
     Active Substance: METHOTREXATE
  17. RITUXIMAB [Suspect]
     Active Substance: RITUXIMAB
     Route: 042
     Dates: start: 20090526

REACTIONS (15)
  - Electrocardiogram repolarisation abnormality [Unknown]
  - Diarrhoea [Unknown]
  - Faecal incontinence [Unknown]
  - Constipation [Unknown]
  - Cough [Not Recovered/Not Resolved]
  - Colon adenoma [Recovered/Resolved]
  - Gastrointestinal disorder [Unknown]
  - Rectal haemorrhage [Unknown]
  - Abdominal pain upper [Unknown]
  - Rhinitis [Unknown]
  - Bronchitis [Unknown]
  - Dyspnoea exertional [Unknown]
  - Hyperkeratosis [Recovered/Resolved]
  - Conjunctivitis [Recovered/Resolved]
  - Monoclonal gammopathy [Unknown]

NARRATIVE: CASE EVENT DATE: 200708
